FAERS Safety Report 9230758 (Version 2)
Quarter: 2013Q2

REPORT INFORMATION
  Report Type: Spontaneous
  Country: GB (occurrence: None)
  Receive Date: 20130411
  Receipt Date: 20130417
  Transmission Date: 20140414
  Serious: Yes (Other)
  Sender: FDA-Public Use
  Company Number: AUR-APL-2013-02985

PATIENT
  Age: 60 Year
  Sex: Female
  Weight: 66.4 kg

DRUGS (2)
  1. ALENDRONIC ACID (ALENDRONIC ACID) [Suspect]
     Indication: OSTEOPOROSIS
     Dosage: (1 DOSAGE FORMS, 1 IN 1 WK), ORAL
     Route: 048
     Dates: start: 20130320
  2. ANASTROZOLE (ANASTROZOLE) [Concomitant]

REACTIONS (2)
  - Malaise [None]
  - Influenza like illness [None]
